FAERS Safety Report 6293760-9 (Version None)
Quarter: 2009Q3

REPORT INFORMATION
  Report Type: 
  Country: None (occurrence: None)
  Receive Date: 20090803
  Receipt Date: 20090724
  Transmission Date: 20100115
  Serious: Yes (Other)
  Sender: FDA-Public Use
  Company Number: US-AMGEN-KDL348321

PATIENT
  Sex: Male
  Weight: 61.3 kg

DRUGS (13)
  1. PROCRIT [Suspect]
     Indication: RENAL FAILURE CHRONIC
     Dates: start: 20080806, end: 20090501
  2. CYANOCOBALAMIN [Suspect]
     Dates: start: 20080821
  3. CITRIC ACID [Concomitant]
  4. LIPITOR [Concomitant]
  5. NEXIUM [Concomitant]
  6. IRON [Concomitant]
     Dates: start: 20090301
  7. FLOMAX [Concomitant]
  8. LOVAZA [Concomitant]
  9. NPH INSULIN [Concomitant]
  10. HUMALOG [Concomitant]
  11. MULTI-VITAMINS [Concomitant]
  12. ACETAMINOPHEN AND HYDROCODONE BITARTRATE [Concomitant]
  13. MESALAMINE [Concomitant]

REACTIONS (2)
  - APLASIA PURE RED CELL [None]
  - WEIGHT DECREASED [None]
